FAERS Safety Report 5271746-0 (Version None)
Quarter: 2007Q1

REPORT INFORMATION
  Report Type: 
  Country: None (occurrence: None)
  Receive Date: 20070321
  Receipt Date: 20070309
  Transmission Date: 20070707
  Serious: Yes (Hospitalization)
  Sender: FDA-Public Use
  Company Number: KR-PFIZER INC-2007015628

PATIENT
  Sex: Male
  Weight: 61 kg

DRUGS (3)
  1. SU-011,248 [Suspect]
     Indication: METASTATIC RENAL CELL CARCINOMA
     Route: 048
  2. AMLODIPINE [Concomitant]
     Route: 048
  3. ALL OTHER NON-THERAPEUTIC PRODUCTS [Concomitant]
     Route: 048
     Dates: start: 20070207

REACTIONS (5)
  - COLITIS [None]
  - HYPERBILIRUBINAEMIA [None]
  - PANCYTOPENIA [None]
  - RENAL FAILURE ACUTE [None]
  - STOMATITIS [None]
